FAERS Safety Report 24669257 (Version 1)
Quarter: 2024Q4

REPORT INFORMATION
  Report Type: Spontaneous
  Country: US (occurrence: None)
  Receive Date: 20241126
  Receipt Date: 20241126
  Transmission Date: 20250115
  Serious: Yes (Other)
  Sender: Public
  Company Number: None

PATIENT
  Age: 55 Year
  Sex: Female

DRUGS (1)
  1. IBRANCE [Suspect]
     Active Substance: PALBOCICLIB
     Indication: Breast cancer female
     Dosage: FREQUENCY : DAILY;?
     Route: 048

REACTIONS (6)
  - Epididymal cyst [None]
  - Nasopharyngitis [None]
  - Dyspnoea [None]
  - Vomiting [None]
  - White blood cell count decreased [None]
  - Red blood cell count decreased [None]
